FAERS Safety Report 22110880 (Version 1)
Quarter: 2023Q1

REPORT INFORMATION
  Report Type: Spontaneous
  Country: KR (occurrence: KR)
  Receive Date: 20230317
  Receipt Date: 20230317
  Transmission Date: 20230418
  Serious: Yes (Hospitalization, Other)
  Sender: FDA-Public Use
  Company Number: KR-MYLANLABS-2023M1028255

PATIENT
  Sex: Female

DRUGS (1)
  1. CELEBREX [Suspect]
     Active Substance: CELECOXIB
     Indication: Pain
     Dosage: 200 MILLIGRAM
     Route: 048

REACTIONS (5)
  - Pulmonary embolism [Unknown]
  - Renal impairment [Unknown]
  - Generalised oedema [Unknown]
  - Hepatic function abnormal [Unknown]
  - Drug ineffective [Unknown]
